FAERS Safety Report 6543902-2 (Version None)
Quarter: 2010Q1

REPORT INFORMATION
  Report Type: 
  Country: None (occurrence: None)
  Receive Date: 20100119
  Receipt Date: 20100119
  Transmission Date: 20100710
  Serious: Yes (Other)
  Sender: FDA-Public Use
  Company Number: None

PATIENT
  Age: 37 Year
  Sex: Female
  Weight: 122.4712 kg

DRUGS (1)
  1. MOTRIN [Suspect]
     Indication: ARTHRALGIA
     Dosage: 200 MB 1/4-6 HRS BUCCAL
     Route: 002
     Dates: start: 20100101, end: 20100115

REACTIONS (2)
  - ABDOMINAL PAIN [None]
  - ABDOMINAL PAIN UPPER [None]
